FAERS Safety Report 14264702 (Version 6)
Quarter: 2020Q1

REPORT INFORMATION
  Report Type: Spontaneous
  Country: US (occurrence: US)
  Receive Date: 20171208
  Receipt Date: 20200320
  Transmission Date: 20200409
  Serious: Yes (Other)
  Sender: FDA-Public Use
  Company Number: US-VIFOR (INTERNATIONAL) INC.-VIT-2017-09153

PATIENT
  Age: 76 Year
  Sex: Female

DRUGS (29)
  1. CITRACAL PETITES/ VITAMIN D [Concomitant]
  2. DICYCLOMINE HYDROCHLORIDE. [Concomitant]
     Active Substance: DICYCLOMINE HYDROCHLORIDE
  3. PLAQUENIL [Concomitant]
     Active Substance: HYDROXYCHLOROQUINE SULFATE
  4. FIBER LAX [Concomitant]
     Active Substance: CALCIUM POLYCARBOPHIL
  5. COLACE CLEAR [Concomitant]
     Active Substance: DOCUSATE SODIUM
  6. TRAZODONE HYDROCHLORIDE. [Concomitant]
     Active Substance: TRAZODONE HYDROCHLORIDE
  7. ARANESP [Concomitant]
     Active Substance: DARBEPOETIN ALFA
  8. OMEPRAZOLE. [Concomitant]
     Active Substance: OMEPRAZOLE
  9. FIBERCON [Concomitant]
     Active Substance: CALCIUM POLYCARBOPHIL
  10. XANAX [Concomitant]
     Active Substance: ALPRAZOLAM
  11. VELTASSA [Suspect]
     Active Substance: PATIROMER
     Route: 048
  12. SODIUM BICARBONATE. [Concomitant]
     Active Substance: SODIUM BICARBONATE
  13. PROLIA [Concomitant]
     Active Substance: DENOSUMAB
  14. FOLIC ACID. [Concomitant]
     Active Substance: FOLIC ACID
  15. TORSEMIDE. [Concomitant]
     Active Substance: TORSEMIDE
  16. PROBIOTIC [Concomitant]
     Active Substance: PROBIOTICS NOS
  17. CALCITRIOL. [Concomitant]
     Active Substance: CALCITRIOL
  18. ALPRAZOLAM. [Concomitant]
     Active Substance: ALPRAZOLAM
  19. VITAMIN D3 [Concomitant]
     Active Substance: CHOLECALCIFEROL
  20. VELTASSA [Suspect]
     Active Substance: PATIROMER
     Indication: HYPERKALAEMIA
     Route: 048
     Dates: start: 20170224
  21. CELEXA [Concomitant]
     Active Substance: CITALOPRAM HYDROBROMIDE
  22. ASPIRIN. [Concomitant]
     Active Substance: ASPIRIN
  23. CARVEDILOL. [Concomitant]
     Active Substance: CARVEDILOL
  24. DOXYCYCLINE HYCLATE. [Concomitant]
     Active Substance: DOXYCYCLINE HYCLATE
  25. SENNA [Concomitant]
     Active Substance: SENNA LEAF\SENNOSIDES\SENNOSIDES A AND B
  26. TYLENOL [Concomitant]
     Active Substance: ACETAMINOPHEN
  27. SIMVASTATIN. [Concomitant]
     Active Substance: SIMVASTATIN
  28. MELATONIN [Concomitant]
     Active Substance: MELATONIN
  29. URSODIOL. [Concomitant]
     Active Substance: URSODIOL

REACTIONS (11)
  - Pneumonia [Unknown]
  - Urinary tract infection [Unknown]
  - Renal disorder [Unknown]
  - Gastrointestinal disorder [Unknown]
  - Influenza [Recovered/Resolved]
  - Off label use [Unknown]
  - Product dose omission [Unknown]
  - Nasopharyngitis [Unknown]
  - Dyspnoea [Unknown]
  - Cough [Not Recovered/Not Resolved]
  - Fracture [Unknown]

NARRATIVE: CASE EVENT DATE: 202002
